FAERS Safety Report 10043190 (Version 1)
Quarter: 2014Q1

REPORT INFORMATION
  Report Type: Spontaneous
  Country: UA (occurrence: US)
  Receive Date: 20140328
  Receipt Date: 20140328
  Transmission Date: 20141002
  Serious: No
  Sender: FDA-Public Use
  Company Number: UA-009507513-1403GBR006849

PATIENT
  Sex: 0

DRUGS (1)
  1. ZISPIN SOLTAB [Suspect]
     Dosage: UNK
     Route: 048

REACTIONS (1)
  - Arthralgia [Unknown]
